FAERS Safety Report 4464968-X (Version None)
Quarter: 2004Q4

REPORT INFORMATION
  Report Type: 
  Country: None (occurrence: None)
  Receive Date: 20041004
  Receipt Date: 20040427
  Transmission Date: 20050328
  Serious: No
  Sender: FDA-Public Use
  Company Number: 368174

PATIENT
  Age: 59 Year
  Sex: Male
  Weight: 88.6 kg

DRUGS (3)
  1. COREG [Suspect]
     Indication: CARDIOMYOPATHY
     Dosage: 3.125MG TWICE PER DAY
     Route: 048
     Dates: start: 20040130
  2. LOTENSIN [Concomitant]
     Indication: DRUG USE FOR UNKNOWN INDICATION
     Dosage: 2.5MG PER DAY
     Route: 048
     Dates: start: 19990120
  3. SOTALOL HCL [Concomitant]
     Indication: DRUG USE FOR UNKNOWN INDICATION
     Dosage: 160MG TWICE PER DAY
     Route: 048
     Dates: start: 20000802

REACTIONS (1)
  - VISION BLURRED [None]
